FAERS Safety Report 13259549 (Version 1)
Quarter: 2017Q1

REPORT INFORMATION
  Report Type: Spontaneous
  Country: CN (occurrence: CN)
  Receive Date: 20170222
  Receipt Date: 20170222
  Transmission Date: 20170428
  Serious: Yes (Death, Other)
  Sender: FDA-Public Use
  Company Number: CN-ASTRAZENECA-2017SE18298

PATIENT
  Sex: Female

DRUGS (2)
  1. IRESSA [Suspect]
     Active Substance: GEFITINIB
     Indication: NON-SMALL CELL LUNG CANCER
     Route: 048
     Dates: start: 201402, end: 201405
  2. IRESSA [Suspect]
     Active Substance: GEFITINIB
     Indication: METASTASES TO BONE
     Route: 048
     Dates: start: 201402, end: 201405

REACTIONS (3)
  - Malignant neoplasm progression [Fatal]
  - Drug resistance [Unknown]
  - Multiple organ dysfunction syndrome [Fatal]
